FAERS Safety Report 16878913 (Version 11)
Quarter: 2020Q4

REPORT INFORMATION
  Report Type: Report from Study
  Country: None (occurrence: JP)
  Receive Date: 20191002
  Receipt Date: 20201118
  Transmission Date: 20210113
  Serious: Yes (Death, Hospitalization, Other)
  Sender: FDA-Public Use
  Company Number: JP-TAKEDA-2019TJP017669AA

PATIENT
  Age: 43 Year
  Sex: Male
  Weight: 70.3 kg

DRUGS (50)
  1. URSODEOXYCHOLIC ACID [Concomitant]
     Active Substance: URSODIOL
     Indication: PROPHYLAXIS
     Dosage: 200 MILLIGRAM, TID
     Route: 048
     Dates: start: 20190712, end: 20190814
  2. MAGNESIUM SULFATE. [Concomitant]
     Active Substance: MAGNESIUM SULFATE
     Indication: ELECTROLYTE SUBSTITUTION THERAPY
     Dosage: 10 MILLIEQUIVALENT, QD
     Route: 042
     Dates: start: 20190722, end: 20190820
  3. VITAJECT                           /07504101/ [Concomitant]
     Indication: PROPHYLAXIS
     Dosage: 10 MILLILITER, QD
     Dates: start: 20191122, end: 20191211
  4. OMEPRAZOLE                         /00661202/ [Concomitant]
     Active Substance: OMEPRAZOLE SODIUM
     Indication: GASTRITIS PROPHYLAXIS
     Dosage: 40 MILLIGRAM, BID
     Route: 042
     Dates: start: 20191124, end: 20191207
  5. DEXCHLORPHENIRAMINE MALEATE. [Concomitant]
     Active Substance: DEXCHLORPHENIRAMINE MALEATE
     Dosage: 5 MILLIGRAM, QD
     Route: 042
     Dates: start: 20191128, end: 20191128
  6. DEXCHLORPHENIRAMINE MALEATE. [Concomitant]
     Active Substance: DEXCHLORPHENIRAMINE MALEATE
     Dosage: 5 MILLIGRAM, QD
     Route: 042
     Dates: start: 20191202, end: 20191202
  7. INSULIN HUMAN [Concomitant]
     Active Substance: INSULIN HUMAN
     Dosage: UNK UNK, QD
     Route: 042
     Dates: start: 20191127, end: 20200101
  8. OMEPRAZOLE                         /00661202/ [Concomitant]
     Active Substance: OMEPRAZOLE SODIUM
     Dosage: 20 MILLILITER, BID
     Route: 042
     Dates: start: 20191208, end: 20200101
  9. ACICLOVIR [Concomitant]
     Active Substance: ACYCLOVIR
     Dosage: 250 MILLIGRAM, QD
     Route: 042
     Dates: start: 20191125, end: 20191211
  10. SOLDEM 1 [Concomitant]
     Active Substance: DEXTROSE\SODIUM CHLORIDE\SODIUM LACTATE
     Indication: PROPHYLAXIS
     Dosage: 1000 MILLILITER, QD
     Route: 042
     Dates: start: 20190725, end: 20190725
  11. SOLDEM 1 [Concomitant]
     Active Substance: DEXTROSE\SODIUM CHLORIDE\SODIUM LACTATE
     Dosage: 500 MILLILITER, QD
     Route: 042
     Dates: start: 20191122, end: 20191211
  12. SODIUM CHLORIDE. [Concomitant]
     Active Substance: SODIUM CHLORIDE
     Indication: PROPHYLAXIS
     Dosage: 4.5 GRAM
     Route: 002
     Dates: start: 20191111, end: 20200101
  13. ELNEOPA NO.1 [Concomitant]
     Active Substance: AMINO ACIDS\DEXTROSE\ELECTROLYTES NOS\MINERALS\VITAMINS
     Indication: PROPHYLAXIS
     Dosage: 1000 MILLILITER
     Route: 042
     Dates: start: 20190725
  14. MEDLENIK [Concomitant]
     Active Substance: CUPRIC SULFATE\FERRIC CHLORIDE\MANGANESE CHLORIDE\POTASSIUM IODIDE\ZINC SULFATE
     Indication: PROPHYLAXIS
     Dosage: 2 MILLILITER, QD
     Route: 042
     Dates: start: 20191122, end: 20191211
  15. GANCICLOVIR. [Concomitant]
     Active Substance: GANCICLOVIR
     Indication: PROPHYLAXIS
     Dosage: 300 MILLIGRAM, QD
     Route: 042
     Dates: start: 20191127, end: 20191216
  16. METHOTREXATE. [Suspect]
     Active Substance: METHOTREXATE
     Indication: PROPHYLAXIS AGAINST GRAFT VERSUS HOST DISEASE
     Dosage: UNK
     Route: 042
     Dates: start: 20190621, end: 20190626
  17. LANSOPRAZOLE. [Concomitant]
     Active Substance: LANSOPRAZOLE
     Indication: GASTRITIS PROPHYLAXIS
     Dosage: 15 MILLIGRAM, QD
     Route: 048
     Dates: start: 20190715, end: 20200101
  18. ACICLOVIR [Concomitant]
     Active Substance: ACYCLOVIR
     Indication: INFECTION PROPHYLAXIS
     Dosage: 200 MILLIGRAM, QD
     Route: 048
     Dates: start: 20190723, end: 20200101
  19. HYDROCORTISONE SODIUM SUCCINATE [Concomitant]
     Active Substance: HYDROCORTISONE SODIUM SUCCINATE
     Indication: ALLERGY PROPHYLAXIS
     Dosage: 100 MILLIGRAM
     Route: 042
     Dates: start: 20190727, end: 20200101
  20. HYOSCINE BUTYLBROMIDE [Concomitant]
     Active Substance: BUTYLSCOPOLAMINE BROMIDE
     Dosage: 40 MILLIGRAM, BID
     Route: 042
     Dates: start: 20191128, end: 20191128
  21. HYOSCINE BUTYLBROMIDE [Concomitant]
     Active Substance: BUTYLSCOPOLAMINE BROMIDE
     Dosage: 20 MILLIGRAM, QD
     Route: 042
     Dates: start: 20191129, end: 20191129
  22. DEXCHLORPHENIRAMINE MALEATE. [Concomitant]
     Active Substance: DEXCHLORPHENIRAMINE MALEATE
     Indication: ALLERGY PROPHYLAXIS
     Dosage: 5 MILLIGRAM, QD
     Route: 042
     Dates: start: 20191125, end: 20191125
  23. VEDOLIZUMAB [Suspect]
     Active Substance: VEDOLIZUMAB
     Indication: PROPHYLAXIS AGAINST GRAFT VERSUS HOST DISEASE
     Dosage: UNK
     Route: 042
     Dates: start: 20190619, end: 20190619
  24. VEDOLIZUMAB [Suspect]
     Active Substance: VEDOLIZUMAB
     Dosage: UNK
     Route: 042
     Dates: start: 20190703, end: 20190703
  25. TACROLIMUS. [Suspect]
     Active Substance: TACROLIMUS
     Dosage: UNK
     Route: 048
     Dates: start: 20191007
  26. URSODEOXYCHOLIC ACID [Concomitant]
     Active Substance: URSODIOL
     Dosage: 100 MILLIGRAM, TID
     Route: 048
     Dates: start: 20190815, end: 20191009
  27. DEXTROMETHORPHAN HYDROBROMIDE. [Concomitant]
     Active Substance: DEXTROMETHORPHAN HYDROBROMIDE
     Indication: COUGH
     Dosage: 15 MILLIGRAM, TID
     Route: 048
     Dates: start: 20190727, end: 20200801
  28. INSULIN HUMAN [Concomitant]
     Active Substance: INSULIN HUMAN
     Indication: PROPHYLAXIS
     Dosage: UNK UNK, QD
     Route: 042
     Dates: start: 20190725, end: 20190802
  29. HYDROCORTISONE SODIUM SUCCINATE [Concomitant]
     Active Substance: HYDROCORTISONE SODIUM SUCCINATE
     Indication: ALLERGY PROPHYLAXIS
     Dosage: 100 UNK
     Route: 042
     Dates: start: 20190727, end: 20200101
  30. DEXCHLORPHENIRAMINE MALEATE. [Concomitant]
     Active Substance: DEXCHLORPHENIRAMINE MALEATE
     Dosage: 5 MILLIGRAM, QD
     Route: 042
     Dates: start: 20191209, end: 20191209
  31. POTASSIUM ASPARTATE [Concomitant]
     Active Substance: POTASSIUM ASPARTATE
     Dosage: 10 MILLILITER, QD
     Route: 042
     Dates: start: 20191212, end: 20191212
  32. HYDROXYZINE HYDROCHLORIDE. [Concomitant]
     Active Substance: HYDROXYZINE HYDROCHLORIDE
     Indication: INSOMNIA
     Dosage: 25 MILLIGRAM, BID
     Route: 042
     Dates: start: 20190927
  33. SODIUM CHLORIDE. [Concomitant]
     Active Substance: SODIUM CHLORIDE
     Indication: PROPHYLAXIS
     Dosage: 20 MILLILITER, QD
     Route: 042
     Dates: start: 20191122, end: 20191222
  34. ZOSYN [Concomitant]
     Active Substance: PIPERACILLIN SODIUM\TAZOBACTAM SODIUM
     Dosage: 13.5 MILLIGRAM, TID
     Route: 042
     Dates: start: 20191125, end: 20191127
  35. HYOSCINE BUTYLBROMIDE [Concomitant]
     Active Substance: BUTYLSCOPOLAMINE BROMIDE
     Indication: GASTRITIS PROPHYLAXIS
     Dosage: 40 MILLIGRAM, BID
     Route: 042
     Dates: start: 20191125, end: 20191125
  36. DEXCHLORPHENIRAMINE MALEATE. [Concomitant]
     Active Substance: DEXCHLORPHENIRAMINE MALEATE
     Dosage: 5 MILLIGRAM, QD
     Route: 042
     Dates: start: 20191205, end: 20191205
  37. POTASSIUM CANRENOATE [Concomitant]
     Active Substance: CANRENOATE POTASSIUM
     Indication: PROPHYLAXIS
     Dosage: 100 MILLIGRAM, QD
     Route: 042
     Dates: start: 20191218, end: 20191218
  38. VEDOLIZUMAB [Suspect]
     Active Substance: VEDOLIZUMAB
     Dosage: UNK
     Route: 042
     Dates: start: 20191023, end: 20191023
  39. TACROLIMUS. [Suspect]
     Active Substance: TACROLIMUS
     Indication: PROPHYLAXIS AGAINST GRAFT VERSUS HOST DISEASE
     Dosage: UNK
     Route: 042
     Dates: start: 20190619, end: 20191006
  40. ANTI-HUMAN THYMOCYTE IMMUNOGLOBULIN,RABBIT [Suspect]
     Active Substance: LAPINE T-LYMPHOCYTE IMMUNE GLOBULIN
     Indication: PROPHYLAXIS AGAINST GRAFT VERSUS HOST DISEASE
     Dosage: UNK
     Route: 042
     Dates: start: 20190618, end: 20190618
  41. HYALURONATE SODIUM [Concomitant]
     Active Substance: HYALURONATE SODIUM
     Indication: PROPHYLAXIS
     Dosage: 1 GTT DROPS
     Route: 047
     Dates: start: 20191115, end: 20200101
  42. VEDOLIZUMAB [Suspect]
     Active Substance: VEDOLIZUMAB
     Dosage: UNK
     Route: 042
     Dates: start: 20190927, end: 20190927
  43. SOLDEM 1 [Concomitant]
     Active Substance: DEXTROSE\SODIUM CHLORIDE\SODIUM LACTATE
     Dosage: 2000 MILLILITER, QD
     Route: 042
     Dates: start: 20190730, end: 20190914
  44. AMIPAREN [Concomitant]
     Active Substance: AMINO ACIDS, SOURCE UNSPECIFIED
     Indication: PROPHYLAXIS
     Dosage: 200 MILLILITER, QD
     Route: 042
     Dates: start: 20191122, end: 20191222
  45. ZOSYN [Concomitant]
     Active Substance: PIPERACILLIN SODIUM\TAZOBACTAM SODIUM
     Indication: INFECTION PROPHYLAXIS
     Dosage: 9.0 MILLILITER, BID
     Route: 042
     Dates: start: 20191124, end: 20191124
  46. HYOSCINE BUTYLBROMIDE [Concomitant]
     Active Substance: BUTYLSCOPOLAMINE BROMIDE
     Dosage: 20 MILLIGRAM, QD
     Route: 042
     Dates: start: 20191127, end: 20191127
  47. DEXCHLORPHENIRAMINE MALEATE. [Concomitant]
     Active Substance: DEXCHLORPHENIRAMINE MALEATE
     Dosage: 5 MILLIGRAM, QD
     Route: 042
     Dates: start: 20191212, end: 20191212
  48. CARBAZOCHROME SODIUM SULFONATE [Concomitant]
     Active Substance: CARBAZOCHROME SODIUM SULFONATE
     Indication: HAEMORRHAGE PROPHYLAXIS
     Dosage: 100 MILLIGRAM, QD
     Route: 042
     Dates: start: 20191129, end: 20191216
  49. POTASSIUM ASPARTATE [Concomitant]
     Active Substance: POTASSIUM ASPARTATE
     Indication: PROPHYLAXIS
     Dosage: 10 MILLILITER, QD
     Route: 042
     Dates: start: 20191127, end: 20191128
  50. POTASSIUM CANRENOATE [Concomitant]
     Active Substance: CANRENOATE POTASSIUM
     Dosage: 100 MILLIGRAM, BID
     Route: 042
     Dates: start: 20191219, end: 20200101

REACTIONS (4)
  - Acute graft versus host disease in intestine [Not Recovered/Not Resolved]
  - Acute graft versus host disease in liver [Recovered/Resolved]
  - Bronchopulmonary aspergillosis [Recovering/Resolving]
  - Acute graft versus host disease in liver [Fatal]

NARRATIVE: CASE EVENT DATE: 20190725
